FAERS Safety Report 21052166 (Version 1)
Quarter: 2022Q3

REPORT INFORMATION
  Report Type: Spontaneous
  Country: US (occurrence: US)
  Receive Date: 20220707
  Receipt Date: 20220707
  Transmission Date: 20221027
  Serious: Yes (Other)
  Sender: FDA-Public Use
  Company Number: US-Shilpa Medicare Limited-SML-US-2022-00762

PATIENT
  Age: 73 Year
  Sex: Male

DRUGS (2)
  1. GEMCITABINE [Suspect]
     Active Substance: GEMCITABINE
     Indication: Transitional cell carcinoma urethra
     Route: 065
     Dates: start: 201906, end: 202002
  2. CISPLATIN [Suspect]
     Active Substance: CISPLATIN
     Indication: Transitional cell carcinoma urethra
     Route: 065
     Dates: start: 201906, end: 202002

REACTIONS (1)
  - Therapy partial responder [Unknown]
